FAERS Safety Report 24920749 (Version 1)
Quarter: 2025Q1

REPORT INFORMATION
  Report Type: Report from Study
  Country: GB (occurrence: GB)
  Receive Date: 20250204
  Receipt Date: 20250204
  Transmission Date: 20250409
  Serious: Yes (Other)
  Sender: ABBVIE
  Company Number: GB-ABBVIE-6113614

PATIENT
  Sex: Female

DRUGS (1)
  1. SKYRIZI [Suspect]
     Active Substance: RISANKIZUMAB-RZAA
     Indication: Crohn^s disease
     Dosage: 1.00 EA ? 360MG/2.4ML
     Route: 058
     Dates: start: 20240117

REACTIONS (3)
  - Tooth restoration [Unknown]
  - Urinary tract infection [Unknown]
  - Product lot number issue [Unknown]
